FAERS Safety Report 8837522 (Version 2)
Quarter: 2012Q4

REPORT INFORMATION
  Report Type: 
  Country: US (occurrence: US)
  Receive Date: 20121012
  Receipt Date: 20121023
  Transmission Date: 20130627
  Serious: No
  Sender: FDA-Public Use
  Company Number: US-VERTEX PHARMACEUTICAL INC.-2012-022282

PATIENT

DRUGS (4)
  1. INCIVEK [Suspect]
     Indication: HEPATITIS C
     Dosage: 750 mg, tid
     Route: 048
     Dates: start: 20120820
  2. PEGASYS [Suspect]
     Indication: HEPATITIS C
     Dosage: 180 ?g, qw
     Route: 058
     Dates: start: 20120820
  3. RIBAVIRIN [Suspect]
     Indication: HEPATITIS C
     Dosage: 1200 mg, qd
     Dates: start: 20120820, end: 201209
  4. RIBAVIRIN [Suspect]
     Dosage: 600 mg, qd
     Dates: start: 201209

REACTIONS (4)
  - Weight increased [Unknown]
  - Flushing [Not Recovered/Not Resolved]
  - Rash generalised [Recovered/Resolved]
  - Red blood cell count decreased [Recovered/Resolved]
